FAERS Safety Report 12007961 (Version 1)
Quarter: 2016Q1

REPORT INFORMATION
  Report Type: Spontaneous
  Country: JP (occurrence: JP)
  Receive Date: 20160205
  Receipt Date: 20160205
  Transmission Date: 20160526
  Serious: Yes (Death)
  Sender: FDA-Public Use
  Company Number: JP-TAKEDA-2016TJP001949

PATIENT
  Age: 86 Year
  Sex: Female

DRUGS (6)
  1. THROMBIN [Concomitant]
     Active Substance: THROMBIN
     Dosage: 20000 IU, UNK
     Route: 065
  2. TEPRENONE [Concomitant]
     Active Substance: TEPRENONE
     Indication: ANASTOMOTIC ULCER
     Dosage: 3 DF, UNK
     Route: 048
  3. ALUMINUM HYDROXIDE GEL [Concomitant]
     Active Substance: ALGELDRATE
     Dosage: 80 ML, UNK
     Route: 048
  4. TAKEPRON INTRAVENOUS 30MG. [Suspect]
     Active Substance: LANSOPRAZOLE
     Indication: HAEMOSTASIS
     Dosage: 60 MG, UNK
     Route: 041
  5. LOXOPROFEN SODIUM [Concomitant]
     Active Substance: LOXOPROFEN SODIUM
     Indication: BACK PAIN
     Dosage: 3 DF, TID
     Route: 048
  6. DICLOFENAC SODIUM. [Concomitant]
     Active Substance: DICLOFENAC SODIUM
     Indication: BACK PAIN
     Dosage: UNK
     Route: 048

REACTIONS (1)
  - Death [Fatal]
